FAERS Safety Report 18253777 (Version 1)
Quarter: 2020Q3

REPORT INFORMATION
  Report Type: Spontaneous
  Country: US (occurrence: US)
  Receive Date: 20200910
  Receipt Date: 20200910
  Transmission Date: 20201103
  Serious: Yes (Other)
  Sender: FDA-Public Use
  Company Number: US-SA-2020SA242179

PATIENT

DRUGS (1)
  1. LANTUS SOLOSTAR [Suspect]
     Active Substance: INSULIN GLARGINE
     Indication: TYPE 2 DIABETES MELLITUS
     Dosage: UNK, BID (45 U AM, 30 U HS)
     Route: 065
     Dates: start: 20140903

REACTIONS (5)
  - Wrong technique in product usage process [Unknown]
  - Cataract [Unknown]
  - Retinal artery occlusion [Unknown]
  - Blindness unilateral [Unknown]
  - Inappropriate schedule of product administration [Unknown]
